FAERS Safety Report 6396751-2 (Version None)
Quarter: 2009Q4

REPORT INFORMATION
  Report Type: 
  Country: None (occurrence: None)
  Receive Date: 20091012
  Receipt Date: 20090626
  Transmission Date: 20100525
  Serious: No
  Sender: FDA-Public Use
  Company Number: US-ASTRAZENECA-2009UW12778

PATIENT
  Age: 73 Year
  Sex: Male

DRUGS (4)
  1. SYMBICORT [Suspect]
     Dosage: 80/4.5  MICROGRAMS TWO PUFFS TWICE A DAY
     Route: 055
  2. ALBUTEROL [Concomitant]
  3. SPIRIVA [Concomitant]
  4. PROSCAR [Concomitant]

REACTIONS (1)
  - CONDITION AGGRAVATED [None]
